FAERS Safety Report 13029771 (Version 11)
Quarter: 2018Q1

REPORT INFORMATION
  Report Type: Report from Study
  Country: JP (occurrence: JP)
  Receive Date: 20161215
  Receipt Date: 20180220
  Transmission Date: 20180508
  Serious: Yes (Hospitalization)
  Sender: FDA-Public Use
  Company Number: JP-ROCHE-1866387

PATIENT
  Age: 72 Year
  Sex: Male
  Weight: 60 kg

DRUGS (73)
  1. PAROXETINE. [Concomitant]
     Active Substance: PAROXETINE
     Indication: CEREBRAL INFARCTION
     Route: 065
     Dates: start: 2016, end: 20161225
  2. BISOPROLOL FUMARATE. [Concomitant]
     Active Substance: BISOPROLOL FUMARATE
     Indication: HYPERTENSION
     Route: 065
     Dates: start: 20161028, end: 20161226
  3. DOMPERIDONE [Concomitant]
     Active Substance: DOMPERIDONE
     Route: 065
     Dates: start: 20170114, end: 20170114
  4. MIYA-BM [Concomitant]
     Active Substance: CLOSTRIDIUM BUTYRICUM SPORES STRAIN M-55
     Indication: DIARRHOEA
     Dosage: MIYA-BM FINE GRANULES
     Route: 065
     Dates: start: 20170207, end: 20170213
  5. PAXIL CR [Concomitant]
     Active Substance: PAROXETINE HYDROCHLORIDE
     Indication: CEREBRAL INFARCTION
     Route: 065
     Dates: start: 20170202, end: 20170207
  6. PAXIL CR [Concomitant]
     Active Substance: PAROXETINE HYDROCHLORIDE
     Indication: DELIRIUM
     Route: 065
     Dates: start: 20170208
  7. LIQUID PARAFFIN [Concomitant]
     Indication: DRY SKIN
     Route: 065
     Dates: start: 20170219
  8. OXYGEN. [Concomitant]
     Active Substance: OXYGEN
     Route: 065
     Dates: start: 20170203, end: 20170222
  9. SOLDEM 3AG [Concomitant]
     Route: 065
     Dates: start: 20170206, end: 20170314
  10. ROPION [Concomitant]
     Active Substance: FLURBIPROFEN AXETIL
     Indication: PLEURAL INFECTION
     Route: 065
     Dates: start: 20170322, end: 20170322
  11. BAYASPIRIN [Concomitant]
     Active Substance: ASPIRIN
     Indication: CEREBRAL INFARCTION
     Route: 065
     Dates: start: 2006
  12. ALLOPURINOL. [Concomitant]
     Active Substance: ALLOPURINOL
     Indication: HYPERURICAEMIA
     Route: 065
     Dates: start: 2012, end: 20170215
  13. BISOPROLOL FUMARATE. [Concomitant]
     Active Substance: BISOPROLOL FUMARATE
     Route: 065
     Dates: start: 20170321
  14. DOMPERIDONE [Concomitant]
     Active Substance: DOMPERIDONE
     Route: 065
     Dates: start: 20170124, end: 20170124
  15. BLOPRESS [Concomitant]
     Active Substance: CANDESARTAN CILEXETIL
     Indication: HYPERTENSION
     Route: 065
     Dates: start: 20170205
  16. ROPION [Concomitant]
     Active Substance: FLURBIPROFEN AXETIL
     Route: 065
     Dates: start: 20170326, end: 20170326
  17. CARBAZOCHROME SODIUM SULFONATE [Concomitant]
     Active Substance: CARBAZOCHROME SODIUM SULFONATE
     Indication: SURGERY
     Route: 065
     Dates: start: 20170327, end: 20170403
  18. NAB-PACLITAXEL [Suspect]
     Active Substance: PACLITAXEL
     Indication: NON-SMALL CELL LUNG CANCER STAGE IV
     Dosage: FIRST DOSE AS PER PROTOCOL (DAY 1, 8, AND 15 OF EACH 21-DAY CYCLE FOR 4 OR 6 CYCLES)?MOST RECENT DOS
     Route: 042
     Dates: start: 20161129
  19. FAMOTIDINE D [Concomitant]
     Active Substance: FAMOTIDINE
     Indication: PROPHYLAXIS
     Route: 065
     Dates: start: 2006
  20. OLMETEC [Concomitant]
     Active Substance: OLMESARTAN MEDOXOMIL
     Route: 065
     Dates: start: 20170112, end: 20170204
  21. CRESTOR [Concomitant]
     Active Substance: ROSUVASTATIN CALCIUM
     Indication: HYPERLIPIDAEMIA
     Route: 065
     Dates: start: 20160222, end: 20161225
  22. LOPERAMIDE HYDROCHLORIDE. [Concomitant]
     Active Substance: LOPERAMIDE HYDROCHLORIDE
     Indication: DIARRHOEA
     Route: 065
     Dates: start: 20161208, end: 20161213
  23. DOMPERIDONE [Concomitant]
     Active Substance: DOMPERIDONE
     Route: 065
     Dates: start: 20170204, end: 20170204
  24. SIGMART [Concomitant]
     Active Substance: NICORANDIL
     Indication: SURGERY
     Route: 065
     Dates: start: 20170322, end: 20170323
  25. ESLAX [Concomitant]
     Active Substance: ROCURONIUM BROMIDE
     Route: 042
     Dates: start: 20170322, end: 20170322
  26. PHYSIO140 [Concomitant]
     Route: 065
     Dates: start: 20170322, end: 20170322
  27. PROPOFOL. [Concomitant]
     Active Substance: PROPOFOL
     Indication: SURGERY
     Route: 042
     Dates: start: 20170322, end: 20170322
  28. PRIMPERAN [Concomitant]
     Active Substance: METOCLOPRAMIDE HYDROCHLORIDE
     Indication: VOMITING
     Route: 065
     Dates: start: 20170323, end: 20170323
  29. LOXOPROFEN [Concomitant]
     Active Substance: LOXOPROFEN
     Indication: TUMOUR PAIN
     Route: 065
     Dates: start: 20161111
  30. REBAMIPIDE [Concomitant]
     Active Substance: REBAMIPIDE
     Indication: PROPHYLAXIS
     Route: 065
     Dates: start: 20161111
  31. BASEN (JAPAN) [Concomitant]
     Indication: DIABETES MELLITUS
     Route: 065
     Dates: start: 20161228, end: 20170215
  32. ATEZOLIZUMAB. [Suspect]
     Active Substance: ATEZOLIZUMAB
     Indication: NON-SMALL CELL LUNG CANCER STAGE IV
     Dosage: ON 13/JAN/2017, THE PATIENT RECEIVED THE LAST DOSE OF ATEZOLIZUMAB PRIOR TO THE PLEURAL EFFUSION
     Route: 042
     Dates: start: 20161129
  33. DOMPERIDONE [Concomitant]
     Active Substance: DOMPERIDONE
     Indication: NAUSEA
     Route: 065
     Dates: start: 20161202, end: 20161203
  34. DOMPERIDONE [Concomitant]
     Active Substance: DOMPERIDONE
     Route: 065
     Dates: start: 20170212, end: 20170217
  35. NOVAMIN (JAPAN) [Concomitant]
     Route: 065
     Dates: start: 20170406
  36. PAXIL [Concomitant]
     Active Substance: PAROXETINE HYDROCHLORIDE
     Route: 065
     Dates: start: 20170202
  37. OXYGEN. [Concomitant]
     Active Substance: OXYGEN
     Indication: LUNG INFECTION
     Route: 065
     Dates: start: 20170322, end: 20170323
  38. ROPION [Concomitant]
     Active Substance: FLURBIPROFEN AXETIL
     Route: 065
     Dates: start: 20170228, end: 20170307
  39. TRAMCET [Concomitant]
     Active Substance: ACETAMINOPHEN\TRAMADOL
     Indication: PROCEDURAL PAIN
     Route: 065
     Dates: start: 20170326
  40. DOMPERIDONE [Concomitant]
     Active Substance: DOMPERIDONE
     Route: 065
     Dates: start: 20170116, end: 20170117
  41. NOVAMIN (JAPAN) [Concomitant]
     Route: 065
     Dates: start: 20170207, end: 20170305
  42. IR-RBC-LR [Concomitant]
     Indication: ANAEMIA
     Dosage: IRRADIATED RED BLOOD CELLS, LEUKOCYTES REDUCED (IR-RBC-LR)
     Route: 065
     Dates: start: 20170206, end: 20170206
  43. IR-RBC-LR [Concomitant]
     Dosage: IRRADIATED RED BLOOD CELLS,LEUKOCYTES?REDUCED
     Route: 065
     Dates: start: 20170306, end: 20170307
  44. WHITE PETROLATUM [Concomitant]
     Active Substance: PETROLATUM
     Indication: DRY SKIN
     Route: 065
     Dates: start: 20170219
  45. K-SUPPLY [Concomitant]
     Active Substance: POTASSIUM CHLORIDE
     Indication: HYPOKALAEMIA
     Route: 065
     Dates: start: 20170321, end: 20170328
  46. SEVOFRANE [Concomitant]
     Active Substance: SEVOFLURANE
     Indication: SURGERY
     Route: 065
     Dates: start: 20170322, end: 20170322
  47. ULTIVA [Concomitant]
     Active Substance: REMIFENTANIL HYDROCHLORIDE
     Route: 042
     Dates: start: 20170322, end: 20170322
  48. PERDIPINE [Concomitant]
     Active Substance: NICARDIPINE HYDROCHLORIDE
     Indication: SURGERY
     Route: 065
     Dates: start: 20170322, end: 20170322
  49. NAB-PACLITAXEL [Suspect]
     Active Substance: PACLITAXEL
     Dosage: DOSE INTERRUPTED
     Route: 042
     Dates: end: 20170406
  50. CARBOPLATIN. [Suspect]
     Active Substance: CARBOPLATIN
     Indication: NON-SMALL CELL LUNG CANCER STAGE IV
     Dosage: INITIAL TARGET AREA UNDER THE CONCENTRATION-CURVE (AUC) OF 6 MG/ML/MIN?MOST RECENT DOSE (595 MG) OF
     Route: 042
     Dates: start: 20161129
  51. CRESTOR [Concomitant]
     Active Substance: ROSUVASTATIN CALCIUM
     Route: 065
     Dates: start: 20170112, end: 20170201
  52. VOGLIBOSE [Concomitant]
     Active Substance: VOGLIBOSE
     Indication: DIABETES MELLITUS
     Route: 065
     Dates: start: 2011, end: 20161210
  53. GRANISETRON [Concomitant]
     Active Substance: GRANISETRON
     Indication: PREMEDICATION
     Route: 065
     Dates: start: 20161129, end: 20161129
  54. MAINTATE [Concomitant]
     Active Substance: BISOPROLOL FUMARATE
     Indication: HYPERTENSION
     Route: 065
     Dates: start: 20161227, end: 20170320
  55. BIOFERMIN R [Concomitant]
     Active Substance: BACILLUS SUBTILIS\LACTOBACILLUS ACIDOPHILUS\STREPTOCOCCUS FAECAIS
     Indication: DIARRHOEA
     Route: 065
     Dates: start: 20170209
  56. PAXIL [Concomitant]
     Active Substance: PAROXETINE HYDROCHLORIDE
     Indication: CEREBRAL INFARCTION
     Route: 065
     Dates: start: 20170112, end: 20170201
  57. LACTEC [Concomitant]
     Active Substance: CALCIUM CHLORIDE ANHYDROUS\POTASSIUM CHLORIDE\SODIUM CHLORIDE\SODIUM LACTATE
     Route: 065
     Dates: start: 20170322, end: 20170322
  58. FENTANYL. [Concomitant]
     Active Substance: FENTANYL
     Indication: SURGERY
     Route: 065
     Dates: start: 20170322, end: 20170323
  59. NEOSYNESIN KOWA [Concomitant]
     Indication: SURGERY
     Route: 065
     Dates: start: 20170322, end: 20170322
  60. ATROPINE. [Concomitant]
     Active Substance: ATROPINE
     Indication: SURGERY
     Route: 065
     Dates: start: 20170322, end: 20170322
  61. BRIDION [Concomitant]
     Active Substance: SUGAMMADEX
     Indication: SURGERY
     Route: 042
     Dates: start: 20170322, end: 20170322
  62. AZUNOL OINTMENT [Concomitant]
     Indication: SKIN ULCER
     Route: 065
     Dates: start: 20170303
  63. CARBOPLATIN. [Suspect]
     Active Substance: CARBOPLATIN
     Dosage: DOSE REDUCED
     Route: 042
     Dates: end: 20170406
  64. OLMETEC [Concomitant]
     Active Substance: OLMESARTAN MEDOXOMIL
     Indication: HYPERTENSION
     Route: 065
     Dates: start: 2006, end: 20161226
  65. LOPERAMIDE HYDROCHLORIDE. [Concomitant]
     Active Substance: LOPERAMIDE HYDROCHLORIDE
     Route: 065
     Dates: start: 20170119
  66. NOVAMIN (JAPAN) [Concomitant]
     Indication: NAUSEA
     Route: 065
     Dates: start: 20170125, end: 20170206
  67. IR-RBC-LR [Concomitant]
     Dosage: IRRADIATED RED BLOOD CELLS,LEUKOCYTES?REDUCED
     Route: 065
     Dates: start: 20170217, end: 20170218
  68. IR-RBC-LR [Concomitant]
     Dosage: IRRADIATED RED BLOOD CELLS, LEUKOCYTES REDUCED (IR-RBC-LR)
     Route: 065
     Dates: start: 20170322, end: 20170322
  69. LIPITOR [Concomitant]
     Active Substance: ATORVASTATIN CALCIUM
     Indication: HYPERLIPIDAEMIA
     Route: 065
     Dates: start: 20170202
  70. DROLEPTAN [Concomitant]
     Active Substance: DROPERIDOL
     Indication: SURGERY
     Route: 065
     Dates: start: 20170322, end: 20170323
  71. SOLDEM 3AG [Concomitant]
     Indication: LUNG INFECTION
     Route: 065
     Dates: start: 20170323, end: 20170323
  72. TRANSAMIN [Concomitant]
     Active Substance: TRANEXAMIC ACID
     Indication: SURGERY
     Route: 065
     Dates: start: 20170327, end: 20170403
  73. DICLOFENAC SODIUM. [Concomitant]
     Active Substance: DICLOFENAC SODIUM
     Indication: SURGERY
     Route: 065
     Dates: start: 20170327, end: 20170327

REACTIONS (2)
  - Pleural infection [Recovered/Resolved]
  - Febrile neutropenia [Recovered/Resolved]

NARRATIVE: CASE EVENT DATE: 20161210
